FAERS Safety Report 18723879 (Version 1)
Quarter: 2021Q1

REPORT INFORMATION
  Report Type: Spontaneous
  Country: US (occurrence: US)
  Receive Date: 20210110
  Receipt Date: 20210110
  Transmission Date: 20210419
  Serious: Yes (Other)
  Sender: FDA-Public Use
  Company Number: None

PATIENT
  Age: 18 Month
  Sex: Male
  Weight: 13.5 kg

DRUGS (3)
  1. A AND D NOS [Suspect]
     Active Substance: DIMETHICONE\ZINC OXIDE OR PETROLATUM
     Indication: DERMATITIS DIAPER
     Route: 061
     Dates: start: 20210110, end: 20210110
  2. TYLENOL [Concomitant]
     Active Substance: ACETAMINOPHEN
  3. IBPROFEN [Concomitant]

REACTIONS (7)
  - Rash erythematous [None]
  - Pain [None]
  - Scrotal irritation [None]
  - Application site rash [None]
  - Screaming [None]
  - Skin irritation [None]
  - Application site haemorrhage [None]

NARRATIVE: CASE EVENT DATE: 20210110
